FAERS Safety Report 8489809-5 (Version None)
Quarter: 2012Q3

REPORT INFORMATION
  Report Type: 
  Country: None (occurrence: None)
  Receive Date: 20120705
  Receipt Date: 20120424
  Transmission Date: 20120928
  Serious: No
  Sender: FDA-Public Use
  Company Number: US-BAUSCH-2012BL002814

PATIENT
  Age: 85 Year
  Sex: Male

DRUGS (2)
  1. LATANOPROST [Suspect]
     Indication: GLAUCOMA
     Route: 047
     Dates: start: 20110301
  2. REFRESH [Concomitant]

REACTIONS (1)
  - FOREIGN BODY SENSATION IN EYES [None]
